FAERS Safety Report 20476630 (Version 1)
Quarter: 2022Q1

REPORT INFORMATION
  Report Type: Spontaneous
  Country: None (occurrence: US)
  Receive Date: 20220215
  Receipt Date: 20220215
  Transmission Date: 20220423
  Serious: No
  Sender: FDA-Public Use
  Company Number: US-Breckenridge Pharmaceutical, Inc.-2125914

PATIENT
  Sex: Female

DRUGS (1)
  1. DULOXETINE [Suspect]
     Active Substance: DULOXETINE
     Indication: Depression
     Route: 048

REACTIONS (5)
  - Diarrhoea [Unknown]
  - Diarrhoea [Unknown]
  - Electric shock sensation [Unknown]
  - Pain [Unknown]
  - Muscle spasms [Unknown]
